FAERS Safety Report 8991071 (Version 2)
Quarter: 2013Q1

REPORT INFORMATION
  Report Type: Spontaneous
  Country: FR (occurrence: FR)
  Receive Date: 20121231
  Receipt Date: 20130125
  Transmission Date: 20140127
  Serious: Yes (Other)
  Sender: FDA-Public Use
  Company Number: FR-UCBSA-073804

PATIENT
  Age: 47 Year
  Sex: Female
  Weight: 65 kg

DRUGS (5)
  1. CIMZIA [Suspect]
     Indication: RHEUMATOID ARTHRITIS
     Route: 058
     Dates: start: 20110719, end: 20110802
  2. CORTANCYL [Concomitant]
     Indication: RHEUMATOID ARTHRITIS
  3. IMETH [Concomitant]
     Indication: RHEUMATOID ARTHRITIS
  4. SPECIAFOLDINE [Concomitant]
     Indication: PROPHYLAXIS
  5. VOLTARENE [Concomitant]

REACTIONS (1)
  - Stevens-Johnson syndrome [Recovered/Resolved]
